FAERS Safety Report 8892987 (Version 1)
Quarter: 2012Q4

REPORT INFORMATION
  Report Type: 
  Country: US (occurrence: US)
  Receive Date: 20121107
  Receipt Date: 20121107
  Transmission Date: 20130627
  Serious: No
  Sender: FDA-Public Use
  Company Number: US-AMGEN-USASP2011054580

PATIENT
  Age: 52 Year
  Sex: Female

DRUGS (8)
  1. ENBREL [Suspect]
     Indication: PRODUCT USED FOR UNKNOWN INDICATION
     Dosage: 50 mg, qwk
     Route: 058
  2. CALTRATE                           /00108001/ [Concomitant]
     Route: 048
  3. PREMPRO [Concomitant]
     Route: 048
  4. ALEVE [Concomitant]
     Dosage: 220 mg, UNK
     Route: 048
  5. MULTI TABS [Concomitant]
     Route: 048
  6. MOTRIN [Concomitant]
     Dosage: 200 mg, UNK
     Route: 048
  7. SIMVASTATIN [Concomitant]
     Dosage: 10 mg, UNK
     Route: 048
  8. FISH OIL [Concomitant]
     Route: 048

REACTIONS (1)
  - Urinary tract infection [Unknown]
